FAERS Safety Report 4337787-2 (Version None)
Quarter: 2004Q2

REPORT INFORMATION
  Report Type: 
  Country: None (occurrence: None)
  Receive Date: 20040408
  Receipt Date: 20040330
  Transmission Date: 20050107
  Serious: Yes (Hospitalization, Disabling)
  Sender: FDA-Public Use
  Company Number: 2004CG00195

PATIENT
  Age: 45 Year
  Sex: Female

DRUGS (7)
  1. NAROPIN [Suspect]
     Indication: EPIDURAL ANAESTHESIA
     Dates: start: 20020925
  2. NAROPIN [Suspect]
     Indication: POSTOPERATIVE ANALGESIA
     Dates: start: 20020925
  3. MORPHINE [Concomitant]
  4. HYPNOVEL [Concomitant]
  5. FRAGMIN [Concomitant]
  6. ACUPAN [Concomitant]
  7. PROFENID ^AVENTIS PHARMA^ [Concomitant]

REACTIONS (6)
  - BLADDER DISORDER [None]
  - CAUDA EQUINA SYNDROME [None]
  - INTERVERTEBRAL DISC DISORDER [None]
  - JOINT ANKYLOSIS [None]
  - RADICULAR PAIN [None]
  - SPINAL CLAUDICATION [None]
